FAERS Safety Report 16915970 (Version 1)
Quarter: 2019Q4

REPORT INFORMATION
  Report Type: Spontaneous
  Country: FR (occurrence: FR)
  Receive Date: 20191014
  Receipt Date: 20191014
  Transmission Date: 20200122
  Serious: Yes (Life-Threatening, Hospitalization, Other)
  Sender: FDA-Public Use
  Company Number: FR-ELI_LILLY_AND_COMPANY-FR201910004640

PATIENT
  Age: 53 Year
  Sex: Female

DRUGS (5)
  1. ANAFRANIL [Interacting]
     Active Substance: CLOMIPRAMINE HYDROCHLORIDE
     Dosage: 3000 MG, DAILY
     Route: 048
     Dates: end: 20140128
  2. PROZAC [Suspect]
     Active Substance: FLUOXETINE HYDROCHLORIDE
     Indication: DEPRESSION
     Dosage: UNK UNK, UNKNOWN
     Route: 048
     Dates: end: 20140128
  3. NUCTALON [Interacting]
     Active Substance: ESTAZOLAM
     Indication: MAJOR DEPRESSION
     Dosage: 40 MG, QD (20 TABLETS)
     Route: 048
     Dates: end: 20140128
  4. ANAFRANIL [Interacting]
     Active Substance: CLOMIPRAMINE HYDROCHLORIDE
     Indication: DEPRESSION
     Dosage: 1000 MG, QD
     Route: 048
     Dates: end: 20140128
  5. AVLOCARDYL [PROPRANOLOL] [Interacting]
     Active Substance: PROPRANOLOL HYDROCHLORIDE
     Indication: DEPRESSION
     Dosage: 640 MG, QD  (16 TABLETS)
     Route: 048
     Dates: end: 20140128

REACTIONS (4)
  - Overdose [Unknown]
  - Drug interaction [Recovering/Resolving]
  - Hypothermia [Recovered/Resolved]
  - Cardiogenic shock [Recovering/Resolving]

NARRATIVE: CASE EVENT DATE: 20140128
